FAERS Safety Report 4427546-4 (Version None)
Quarter: 2004Q3

REPORT INFORMATION
  Report Type: 
  Country: None (occurrence: None)
  Receive Date: 20040812
  Receipt Date: 20040730
  Transmission Date: 20050211
  Serious: Yes (Death)
  Sender: FDA-Public Use
  Company Number: 1781-054

PATIENT
  Age: 87 Year
  Sex: Male

DRUGS (11)
  1. DEXFERRUM [Suspect]
     Indication: ANAEMIA
     Dosage: 25 MG TEST DOSE IV
     Route: 042
     Dates: start: 20040725
  2. KCL TAB [Concomitant]
  3. FOLIC ACID [Concomitant]
  4. ZOSYN [Concomitant]
  5. INDERAL LA [Concomitant]
  6. LASIX [Concomitant]
  7. VITAMIN B6 [Concomitant]
  8. PROCRIT [Concomitant]
  9. RESTORIL [Concomitant]
  10. VICODIN [Concomitant]
  11. XANAX [Concomitant]

REACTIONS (6)
  - ANAPHYLACTIC REACTION [None]
  - BACK PAIN [None]
  - CARDIO-RESPIRATORY ARREST [None]
  - COMA [None]
  - DYSPNOEA [None]
  - SOMNOLENCE [None]
